FAERS Safety Report 8321898-0 (Version None)
Quarter: 2012Q2

REPORT INFORMATION
  Report Type: 
  Country: None (occurrence: None)
  Receive Date: 20120426
  Receipt Date: 20120418
  Transmission Date: 20120825
  Serious: Yes (Other)
  Sender: FDA-Public Use
  Company Number: AUR-APL-2012-01913

PATIENT
  Age: 47 Year
  Sex: Female
  Weight: 56 kg

DRUGS (2)
  1. MIRTAZAPINE [Suspect]
     Indication: DEPRESSION
     Dosage: (15 MG), ORAL
     Route: 048
  2. PAROXETINE HCL [Concomitant]

REACTIONS (3)
  - PARAESTHESIA ORAL [None]
  - HYPERAESTHESIA [None]
  - HYPOAESTHESIA [None]
